FAERS Safety Report 23527099 (Version 1)
Quarter: 2024Q1

REPORT INFORMATION
  Report Type: Spontaneous
  Country: US (occurrence: None)
  Receive Date: 20240215
  Receipt Date: 20240215
  Transmission Date: 20240410
  Serious: Yes (unspecified)
  Sender: FDA-Public Use
  Company Number: None

PATIENT
  Age: 69 Year
  Sex: Female
  Weight: 124 kg

DRUGS (14)
  1. LOSARTAN [Suspect]
     Active Substance: LOSARTAN
     Indication: Hypertension
     Dosage: FREQUENCY : DAILY;?
     Route: 048
     Dates: start: 20231126
  2. HYDROCHLOROTHIAZIDE [Concomitant]
     Active Substance: HYDROCHLOROTHIAZIDE
  3. METFORMIN [Concomitant]
     Active Substance: METFORMIN HYDROCHLORIDE
  4. SEMAGLUTIDE [Concomitant]
     Active Substance: SEMAGLUTIDE
  5. ACETAMINOPHEN [Concomitant]
     Active Substance: ACETAMINOPHEN
  6. GABAPENTIN [Concomitant]
     Active Substance: GABAPENTIN
  7. MELATONIN [Concomitant]
     Active Substance: MELATONIN
  8. MELOXICAM [Concomitant]
     Active Substance: MELOXICAM
  9. SULFASALAZINE [Concomitant]
     Active Substance: SULFASALAZINE
  10. AMLODIPINE [Concomitant]
     Active Substance: AMLODIPINE BESYLATE
  11. GLIPIZIDE [Concomitant]
     Active Substance: GLIPIZIDE
  12. ASPIRIN [Concomitant]
     Active Substance: ASPIRIN
  13. ROSUVASTATIN [Concomitant]
     Active Substance: ROSUVASTATIN
  14. CHOLECALCIFEROL [Concomitant]
     Active Substance: CHOLECALCIFEROL

REACTIONS (6)
  - Urinary tract infection [None]
  - Asthenia [None]
  - Dizziness [None]
  - Lethargy [None]
  - Hyponatraemia [None]
  - Hepatic cirrhosis [None]

NARRATIVE: CASE EVENT DATE: 20231220
